FAERS Safety Report 5877566-8 (Version None)
Quarter: 2008Q3

REPORT INFORMATION
  Report Type: 
  Country: None (occurrence: None)
  Receive Date: 20080911
  Receipt Date: 20080903
  Transmission Date: 20090109
  Serious: Yes (Hospitalization)
  Sender: FDA-Public Use
  Company Number: PHHY2008GB20372

PATIENT
  Age: 41 Year
  Sex: Male

DRUGS (2)
  1. CLOZAPINE [Suspect]
     Dosage: UNK
     Route: 048
     Dates: start: 20080523, end: 20080708
  2. ZAPONEX [Suspect]
     Dosage: UNK
     Route: 048
     Dates: start: 20080709, end: 20080812

REACTIONS (1)
  - APPENDICITIS PERFORATED [None]
